FAERS Safety Report 12327022 (Version 1)
Quarter: 2016Q2

REPORT INFORMATION
  Report Type: Spontaneous
  Country: US (occurrence: None)
  Receive Date: 20160502
  Receipt Date: 20160502
  Transmission Date: 20160815
  Serious: No
  Sender: FDA-Public Use
  Company Number: None

PATIENT
  Age: 53 Year
  Sex: Female
  Weight: 55.34 kg

DRUGS (22)
  1. PILOCARPINE 5MG TABLETS, 5 MG [Suspect]
     Active Substance: PILOCARPINE HYDROCHLORIDE
     Indication: SJOGREN^S SYNDROME
     Route: 048
     Dates: start: 20160421, end: 20160428
  2. ARMOUR THYROID [Concomitant]
     Active Substance: THYROID, PORCINE
  3. FLECAINIDEACETATE [Concomitant]
  4. ST.JOHN^S WORT [Concomitant]
  5. SUPER B COMPLEX [Concomitant]
     Active Substance: CYANOCOBALAMIN\DEXPANTHENOL\NIACINAMIDE\PYRIDOXINE HYDROCHLORIDE\RIBOFLAVIN 5^-PHOSPHATE SODIUM\THIAMINE HYDROCHLORIDE\VITAMIN B COMPLEX
  6. LOWDOSENALTREXONE [Concomitant]
  7. BLADDER INJECTIONS [Concomitant]
  8. FLEXERIL [Concomitant]
     Active Substance: CYCLOBENZAPRINE HYDROCHLORIDE
  9. HYDROCHLORATHIAZIDE [Concomitant]
     Active Substance: HYDROCHLOROTHIAZIDE
  10. VENTOLIN [Concomitant]
     Active Substance: ALBUTEROL SULFATE
  11. COD LIVER OIL [Concomitant]
     Active Substance: COD LIVER OIL
  12. OMEGA 3 FISH OIL [Concomitant]
     Active Substance: FISH OIL\OMEGA-3 FATTY ACIDS
  13. OMEPRAZOLE. [Concomitant]
     Active Substance: OMEPRAZOLE
  14. SEA BUCKTHORN [Concomitant]
  15. SENIOR VITAMIN [Concomitant]
  16. ALBUTEROL SULFATE. [Concomitant]
     Active Substance: ALBUTEROL SULFATE
  17. AMLODIPINE BESYLATE. [Concomitant]
     Active Substance: AMLODIPINE BESYLATE
  18. NITROFURATOIN [Concomitant]
  19. OCUVITE [Concomitant]
     Active Substance: VITAMINS
  20. BOTOX [Concomitant]
     Active Substance: ONABOTULINUMTOXINA
  21. FLAX SEED [Concomitant]
     Active Substance: FLAX SEED
  22. SUREBIOTICS PROBIOTIC [Concomitant]

REACTIONS (8)
  - Condition aggravated [None]
  - Rebound effect [None]
  - Aptyalism [None]
  - Wrong technique in product usage process [None]
  - Choking [None]
  - Feeding disorder [None]
  - Hyperhidrosis [None]
  - Panic attack [None]

NARRATIVE: CASE EVENT DATE: 20160428
